FAERS Safety Report 12429545 (Version 1)
Quarter: 2016Q2

REPORT INFORMATION
  Report Type: Other
  Country: GB (occurrence: GB)
  Receive Date: 20160602
  Receipt Date: 20160602
  Transmission Date: 20160815
  Serious: Yes (Other)
  Sender: FDA-Public Use
  Company Number: GB-MYLANLABS-2016M1022023

PATIENT

DRUGS (12)
  1. TAMOXIFEN [Concomitant]
     Active Substance: TAMOXIFEN
     Dosage: UNK
     Route: 065
     Dates: start: 2012
  2. HERCEPTIN [Suspect]
     Active Substance: TRASTUZUMAB
     Indication: METASTASES TO LUNG
     Dosage: UNK (X 6)
     Route: 065
     Dates: start: 2007
  3. HERCEPTIN [Suspect]
     Active Substance: TRASTUZUMAB
     Indication: METASTASES TO BONE
     Dosage: UNK
     Route: 065
     Dates: start: 2011
  4. LAPATINIB [Concomitant]
     Active Substance: LAPATINIB
     Dosage: UNK
     Route: 065
     Dates: start: 2012
  5. CAPECITABINE. [Suspect]
     Active Substance: CAPECITABINE
     Indication: PRODUCT USED FOR UNKNOWN INDICATION
     Dosage: UNK
     Route: 065
     Dates: start: 2012, end: 201206
  6. EXEMESTANE. [Concomitant]
     Active Substance: EXEMESTANE
     Dosage: UNK (TILL DISEASE PROGRESSION)
     Route: 065
  7. CAPECITABINE. [Suspect]
     Active Substance: CAPECITABINE
     Dosage: UNK
     Route: 065
     Dates: start: 2011
  8. KADCYLA [Suspect]
     Active Substance: ADO-TRASTUZUMAB EMTANSINE
     Indication: METASTASES TO LUNG
     Dosage: UNK
     Route: 065
     Dates: start: 2015
  9. VINORELBINE [Concomitant]
     Active Substance: VINORELBINE\VINORELBINE TARTRATE
     Dosage: UNK
     Route: 065
     Dates: start: 2014
  10. ERIBULIN [Concomitant]
     Active Substance: ERIBULIN
     Dosage: UNK
     Route: 065
     Dates: start: 2015
  11. LAPATINIB [Concomitant]
     Active Substance: LAPATINIB
     Dosage: UNK
     Route: 065
     Dates: start: 2014
  12. TAXOTERE [Concomitant]
     Active Substance: DOCETAXEL
     Dosage: UNK (X 6)
     Route: 065

REACTIONS (1)
  - Gastrointestinal toxicity [Unknown]
